FAERS Safety Report 10619903 (Version 3)
Quarter: 2014Q4

REPORT INFORMATION
  Report Type: Spontaneous
  Country: CA (occurrence: CA)
  Receive Date: 20141202
  Receipt Date: 20141219
  Transmission Date: 20150529
  Serious: Yes (Other)
  Sender: FDA-Public Use
  Company Number: PHHY2014CA137433

PATIENT
  Sex: Female

DRUGS (5)
  1. PAROXETINE [Concomitant]
     Active Substance: PAROXETINE\PAROXETINE HYDROCHLORIDE
     Indication: PRODUCT USED FOR UNKNOWN INDICATION
     Dosage: 10 MG, QD
     Route: 065
  2. ESTRADOT [Suspect]
     Active Substance: ESTRADIOL
     Dosage: 1 DF, AFTER 2 DAYS
     Route: 062
  3. TECTA [Concomitant]
     Active Substance: PANTOPRAZOLE MAGNESIUM
     Indication: PRODUCT USED FOR UNKNOWN INDICATION
     Dosage: 40 OT, QD
     Route: 065
  4. ESTRADOT [Suspect]
     Active Substance: ESTRADIOL
     Indication: MENOPAUSAL SYMPTOMS
     Dosage: 1 DF, EVERY 4 DAYS (2 PATCHES A WEEK)
     Route: 062
     Dates: start: 201311
  5. PROVERA [Concomitant]
     Active Substance: MEDROXYPROGESTERONE ACETATE
     Indication: PRODUCT USED FOR UNKNOWN INDICATION
     Dosage: 2.5 OT, QD
     Route: 065

REACTIONS (6)
  - Night sweats [Recovered/Resolved]
  - Mental disorder [Unknown]
  - Hot flush [Recovered/Resolved]
  - Drug intolerance [Unknown]
  - Malabsorption [Unknown]
  - Drug ineffective [Unknown]
